FAERS Safety Report 9130184 (Version 1)
Quarter: 2013Q1

REPORT INFORMATION
  Report Type: Spontaneous
  Country: BE (occurrence: BE)
  Receive Date: 20130228
  Receipt Date: 20130228
  Transmission Date: 20140127
  Serious: Yes (Hospitalization)
  Sender: FDA-Public Use
  Company Number: BE-UCBSA-079297

PATIENT
  Sex: Male

DRUGS (1)
  1. KEPPRA [Suspect]
     Dosage: 72 TABLETS  OF 1000 MG
     Route: 048

REACTIONS (2)
  - Intentional overdose [Recovered/Resolved]
  - Aggression [Recovered/Resolved]
